FAERS Safety Report 4980346-9 (Version None)
Quarter: 2006Q2

REPORT INFORMATION
  Report Type: 
  Country: None (occurrence: None)
  Receive Date: 20060424
  Receipt Date: 20060417
  Transmission Date: 20061013
  Serious: Yes (Other)
  Sender: FDA-Public Use
  Company Number: PHEH2006US05018

PATIENT
  Sex: Female

DRUGS (1)
  1. LOTREL [Suspect]
     Route: 048

REACTIONS (1)
  - DEPRESSION [None]
